FAERS Safety Report 5574903-9 (Version None)
Quarter: 2007Q4

REPORT INFORMATION
  Report Type: 
  Country: None (occurrence: None)
  Receive Date: 20071227
  Receipt Date: 20071221
  Transmission Date: 20080405
  Serious: Yes (Other)
  Sender: FDA-Public Use
  Company Number: BE-JNJFOC-20071200246

PATIENT
  Sex: Female
  Weight: 66 kg

DRUGS (10)
  1. IMONOGAS [Suspect]
     Indication: FLATULENCE
     Dosage: UNKNOWN
     Route: 048
  2. AKTON [Concomitant]
  3. BETASERC [Concomitant]
     Indication: TINNITUS
     Route: 048
  4. BETASERC [Concomitant]
     Indication: VERTIGO
     Route: 048
  5. DAKAR [Concomitant]
     Indication: OESOPHAGITIS
     Route: 048
  6. DAKAR [Concomitant]
     Indication: ULCER
     Route: 048
  7. EFFEXOR [Concomitant]
     Indication: DEPRESSION
     Route: 048
  8. FEMOSTON CONTI [Concomitant]
     Indication: MENOPAUSE
     Route: 048
  9. IBEXONE [Concomitant]
     Indication: TINNITUS
     Route: 048
  10. IBEXONE [Concomitant]
     Indication: VERTIGO
     Route: 048

REACTIONS (2)
  - ABDOMINAL PAIN [None]
  - DIARRHOEA [None]
